FAERS Safety Report 5214855-4 (Version None)
Quarter: 2007Q1

REPORT INFORMATION
  Report Type: 
  Country: None (occurrence: None)
  Receive Date: 20070122
  Receipt Date: 20070122
  Transmission Date: 20070707
  Serious: Yes (Hospitalization, Other)
  Sender: FDA-Public Use
  Company Number: None

PATIENT
  Age: 55 Year
  Sex: Female
  Weight: 47.1741 kg

DRUGS (2)
  1. TEMAZEPAM [Suspect]
     Indication: ANXIETY
     Dosage: 15 MG ONCE PER NIGHT PO
     Route: 048
  2. ALPRAZOLAM [Suspect]
     Indication: SLEEP DISORDER
     Dosage: 1 MG TWICE DAILY PO
     Route: 048

REACTIONS (8)
  - ACTIVITIES OF DAILY LIVING IMPAIRED [None]
  - ANXIETY [None]
  - DEPRESSION [None]
  - DISTURBANCE IN ATTENTION [None]
  - DRUG DEPENDENCE [None]
  - DRUG WITHDRAWAL SYNDROME [None]
  - FEAR [None]
  - PANIC ATTACK [None]
